FAERS Safety Report 8678934 (Version 2)
Quarter: 2012Q4

REPORT INFORMATION
  Report Type: Report from Study
  Country: US (occurrence: US)
  Receive Date: 20120723
  Receipt Date: 20120926
  Transmission Date: 20130627
  Serious: Yes (Death, Hospitalization, Other)
  Sender: FDA-Public Use
  Company Number: US-ROCHE-1089611

PATIENT
  Age: 79 Year
  Sex: Female

DRUGS (7)
  1. MABTHERA [Suspect]
     Indication: WEGENER^S GRANULOMATOSIS
     Route: 042
     Dates: start: 20120621, end: 20120706
  2. MABTHERA [Suspect]
     Route: 042
     Dates: start: 20120713
  3. METHOTREXATE [Concomitant]
     Indication: WEGENER^S GRANULOMATOSIS
     Route: 048
  4. PREDNISONE [Concomitant]
     Route: 065
     Dates: start: 20120618
  5. DIFLUCAN [Concomitant]
     Indication: CANDIDIASIS
     Route: 048
     Dates: start: 20120706
  6. FOSAMAX [Concomitant]
     Indication: OSTEOPOROSIS
  7. SIMVASTATIN [Concomitant]

REACTIONS (7)
  - Sudden death [Fatal]
  - Wrist fracture [Unknown]
  - Agranulocytosis [Unknown]
  - Fatigue [Unknown]
  - Oropharyngeal pain [Unknown]
  - Fall [Unknown]
  - Candidiasis [Unknown]
